FAERS Safety Report 4791673-2 (Version None)
Quarter: 2005Q4

REPORT INFORMATION
  Report Type: 
  Country: None (occurrence: None)
  Receive Date: 20051005
  Receipt Date: 20050916
  Transmission Date: 20060501
  Serious: Yes (Death)
  Sender: FDA-Public Use
  Company Number: GBS050918335

PATIENT
  Age: 70 Year
  Sex: Female
  Weight: 55 kg

DRUGS (7)
  1. XIGRIS [Suspect]
     Indication: SEPSIS
     Dosage: 24 UG/KR/HR
     Dates: start: 20050830, end: 20050831
  2. HYDROCORTISONE [Concomitant]
  3. NORADRENALINE [Concomitant]
  4. ADRENALINE [Concomitant]
  5. TAZOCIN [Concomitant]
  6. METRONIDAZOLE [Concomitant]
  7. CEFTAZIDIME [Concomitant]

REACTIONS (6)
  - ACTIVATED PARTIAL THROMBOPLASTIN TIME PROLONGED [None]
  - BLOOD CULTURE POSITIVE [None]
  - INTERNATIONAL NORMALISED RATIO INCREASED [None]
  - PLATELET COUNT DECREASED [None]
  - PSEUDOMONAS INFECTION [None]
  - SPUTUM CULTURE POSITIVE [None]
